FAERS Safety Report 9893303 (Version 2)
Quarter: 2014Q1

REPORT INFORMATION
  Report Type: Report from Study
  Country: AR (occurrence: AR)
  Receive Date: 20140213
  Receipt Date: 20140304
  Transmission Date: 20141002
  Serious: Yes (Death, Hospitalization, Other)
  Sender: FDA-Public Use
  Company Number: AR-ROCHE-1345402

PATIENT
  Age: 67 Year
  Sex: Male
  Weight: 61.5 kg

DRUGS (2)
  1. AVASTIN [Suspect]
     Indication: RECTAL CANCER
     Route: 065
     Dates: start: 20100625, end: 20121110
  2. CAPECITABINE [Suspect]
     Indication: RECTAL CANCER
     Route: 048
     Dates: start: 20100501, end: 20121110

REACTIONS (5)
  - Death [Fatal]
  - Ileal fistula [Unknown]
  - Right ventricular failure [Unknown]
  - Atrial thrombosis [Unknown]
  - Palmar-plantar erythrodysaesthesia syndrome [Unknown]
